FAERS Safety Report 6432620-7 (Version None)
Quarter: 2009Q4

REPORT INFORMATION
  Report Type: 
  Country: None (occurrence: None)
  Receive Date: 20091109
  Receipt Date: 20091027
  Transmission Date: 20100525
  Serious: No
  Sender: FDA-Public Use
  Company Number: US-B.I. PHARMACEUTICALS,INC./RIDGEFIELD-2009-BP-12454BP

PATIENT
  Age: 67 Year
  Sex: Male

DRUGS (4)
  1. FLOMAX [Suspect]
     Indication: URINARY INCONTINENCE
     Dosage: 0.4 MG
     Route: 048
     Dates: start: 20090928
  2. GABAPENTIN [Concomitant]
     Indication: RESTLESS LEGS SYNDROME
  3. PROPRANOLOL [Concomitant]
     Indication: TREMOR
  4. CRESTOR [Concomitant]
     Indication: BLOOD CHOLESTEROL INCREASED

REACTIONS (1)
  - URINARY INCONTINENCE [None]
